FAERS Safety Report 25032304 (Version 2)
Quarter: 2025Q3

REPORT INFORMATION
  Report Type: Report from Study
  Country: CN (occurrence: CN)
  Receive Date: 20250303
  Receipt Date: 20250715
  Transmission Date: 20251021
  Serious: Yes (Hospitalization, Other)
  Sender: BAXTER
  Company Number: CN-BAXTER-2025BAX011879

PATIENT
  Age: 61 Year
  Sex: Female
  Weight: 65 kg

DRUGS (20)
  1. CYCLOPHOSPHAMIDE [Suspect]
     Active Substance: CYCLOPHOSPHAMIDE
     Indication: Follicular lymphoma
     Route: 042
     Dates: start: 20241205
  2. CYCLOPHOSPHAMIDE [Suspect]
     Active Substance: CYCLOPHOSPHAMIDE
     Dosage: 705.93 MG, QD (EVERY 1 DAYS)
     Route: 040
     Dates: start: 20250116
  3. EPCORITAMAB [Suspect]
     Active Substance: EPCORITAMAB
     Indication: Follicular lymphoma
     Route: 065
  4. DOXORUBICIN [Suspect]
     Active Substance: DOXORUBICIN
     Indication: Follicular lymphoma
     Route: 042
     Dates: start: 20241205
  5. DOXORUBICIN [Suspect]
     Active Substance: DOXORUBICIN
     Dosage: 47.06 MG, QD (EVERY 1 DAYS)
     Route: 041
     Dates: start: 20250116
  6. RITUXIMAB [Suspect]
     Active Substance: RITUXIMAB
     Indication: Follicular lymphoma
     Route: 042
     Dates: start: 20241204
  7. RITUXIMAB [Suspect]
     Active Substance: RITUXIMAB
     Dosage: 627.49 MG, QD (EVERY 1 DAYS)
     Route: 041
     Dates: start: 20241212
  8. PREDNISONE [Suspect]
     Active Substance: PREDNISONE
     Indication: Follicular lymphoma
     Dosage: 100 MG, QD (CYCLE1-6 (21 DAY CYCLE) ON D1-5, EVERY 1 DAYS)
     Route: 048
     Dates: start: 20241204
  9. VINCRISTINE [Suspect]
     Active Substance: VINCRISTINE
     Indication: Follicular lymphoma
     Route: 042
     Dates: start: 20241205
  10. VINCRISTINE [Suspect]
     Active Substance: VINCRISTINE
     Dosage: 2 MG, QD (EVERY 1 DAYS)
     Route: 041
     Dates: start: 20250116
  11. ENOXAPARIN SODIUM [Concomitant]
     Active Substance: ENOXAPARIN SODIUM
     Indication: Thrombosis prophylaxis
     Route: 065
     Dates: start: 20241204
  12. FUROSEMIDE [Concomitant]
     Active Substance: FUROSEMIDE
     Indication: Hypertension
     Dosage: 20 MG, QD (EVERY 1 DAYS)
     Route: 065
     Dates: start: 20241214
  13. PROMETHAZINE HYDROCHLORIDE [Concomitant]
     Active Substance: PROMETHAZINE HYDROCHLORIDE
     Indication: Prophylaxis of nausea and vomiting
     Dosage: 40 MG, QD (EVERY 1 DAYS)
     Route: 065
     Dates: start: 20241204
  14. PROMETHAZINE HYDROCHLORIDE [Concomitant]
     Active Substance: PROMETHAZINE HYDROCHLORIDE
     Dosage: 25 MG, QD (EVERY 1 DAYS)
     Route: 065
     Dates: start: 20241225, end: 20241225
  15. ONDANSETRON HYDROCHLORIDE [Concomitant]
     Active Substance: ONDANSETRON HYDROCHLORIDE
     Indication: Nausea
     Dosage: 8 MG, QD (EVERY 1 DAYS)
     Route: 065
     Dates: start: 20241205, end: 20250106
  16. ONDANSETRON HYDROCHLORIDE [Concomitant]
     Active Substance: ONDANSETRON HYDROCHLORIDE
     Indication: Vomiting
     Dosage: 8 MG, QD (EVERY 1 DAYS)
     Route: 065
     Dates: start: 20241225, end: 20241227
  17. Mucopolysaccharide polysulfate [Concomitant]
     Indication: Thrombosis prophylaxis
     Route: 065
     Dates: start: 20241204
  18. DICLOFENAC SODIUM [Concomitant]
     Active Substance: DICLOFENAC SODIUM
     Indication: Prophylaxis of nausea and vomiting
     Dosage: 50 MG, QD (EVERY 1 DAYS)
     Route: 065
     Dates: start: 20241204
  19. GLUTATHIONE [Concomitant]
     Active Substance: GLUTATHIONE
     Indication: Aspartate aminotransferase increased
     Dosage: 1.8 G, QD (EVERY 1 DAYS)
     Route: 065
     Dates: start: 20241225
  20. DEXAMETHASONE SODIUM PHOSPHATE [Concomitant]
     Active Substance: DEXAMETHASONE SODIUM PHOSPHATE
     Indication: Allergy prophylaxis
     Dosage: 5 MG, QD (EVERY 1 DAYS)
     Route: 065
     Dates: start: 20241225

REACTIONS (1)
  - Diabetes mellitus [Recovered/Resolved]

NARRATIVE: CASE EVENT DATE: 20250124
